FAERS Safety Report 7631219-4 (Version None)
Quarter: 2011Q3

REPORT INFORMATION
  Report Type: 
  Country: None (occurrence: None)
  Receive Date: 20110725
  Receipt Date: 20110713
  Transmission Date: 20111222
  Serious: Yes (Death)
  Sender: FDA-Public Use
  Company Number: US-JNJFOC-20110706901

PATIENT
  Sex: Male
  Weight: 51.26 kg

DRUGS (15)
  1. VARDENAFIL HYDROCHLORIDE (LEVITRA) [Concomitant]
     Dates: start: 20010101
  2. NEXIUM [Concomitant]
     Indication: GASTROINTESTINAL DISORDER THERAPY
     Dates: start: 20110607
  3. ROSUVASTATIN [Concomitant]
     Dates: start: 20110401
  4. IBUPROFEN [Suspect]
     Indication: OSTEOARTHRITIS
     Route: 048
     Dates: start: 20110607, end: 20110708
  5. FLUNISOLIDE [Concomitant]
     Dates: start: 20060101
  6. POTASSIUM CHLORIDE [Concomitant]
     Dates: start: 19980101
  7. ASPIRIN [Concomitant]
     Dates: start: 20000101
  8. AMLODIPINE [Concomitant]
     Dates: start: 19980101
  9. INDAPAMIDE [Concomitant]
     Dates: start: 20010101
  10. LORATADINE [Concomitant]
     Dates: start: 20060101
  11. ATENOLOL [Concomitant]
     Dates: start: 19980101
  12. TERAZOSIN HCL [Concomitant]
     Dates: start: 20090101
  13. IBUPROFEN [Suspect]
     Indication: RHEUMATOID ARTHRITIS
     Route: 048
     Dates: start: 20110607, end: 20110708
  14. ALLOPURINOL [Concomitant]
     Dates: start: 20060101
  15. TERBINAFINE HCL [Concomitant]
     Dates: start: 20060101

REACTIONS (1)
  - DEATH [None]
